FAERS Safety Report 5679568-3 (Version None)
Quarter: 2008Q1

REPORT INFORMATION
  Report Type: 
  Country: None (occurrence: None)
  Receive Date: 20080321
  Receipt Date: 20080307
  Transmission Date: 20080703
  Serious: Yes (Death, Other)
  Sender: FDA-Public Use
  Company Number: 2008US000373

PATIENT
  Age: 70 Year
  Sex: Female

DRUGS (8)
  1. AMBISOME [Suspect]
     Indication: BRONCHOPULMONARY ASPERGILLOSIS
     Dosage: 100 MG, UID/QD, IV NOS
     Route: 042
     Dates: start: 20070808, end: 20070814
  2. ITRACONAZOLE [Concomitant]
  3. SOLU-CORTEF [Concomitant]
  4. FAMOTIDINE [Concomitant]
  5. PLATELETS [Concomitant]
  6. CEFTAZIDIME [Concomitant]
  7. MINOCYCLINE HCL [Concomitant]
  8. RED BLOOD CELLS [Concomitant]

REACTIONS (9)
  - ALANINE AMINOTRANSFERASE INCREASED [None]
  - ASPARTATE AMINOTRANSFERASE INCREASED [None]
  - BLOOD ALKALINE PHOSPHATASE INCREASED [None]
  - GAMMA-GLUTAMYLTRANSFERASE INCREASED [None]
  - HAEMATOCRIT DECREASED [None]
  - HAEMOGLOBIN DECREASED [None]
  - HYPOKALAEMIA [None]
  - NEOPLASM [None]
  - PLATELET COUNT DECREASED [None]
